FAERS Safety Report 20603073 (Version 1)
Quarter: 2022Q1

REPORT INFORMATION
  Report Type: Spontaneous
  Country: US (occurrence: US)
  Receive Date: 20220316
  Receipt Date: 20220316
  Transmission Date: 20220423
  Serious: No
  Sender: FDA-Public Use
  Company Number: US-GILEAD-2022-0572732

PATIENT
  Sex: Male

DRUGS (22)
  1. EPCLUSA [Suspect]
     Active Substance: SOFOSBUVIR\VELPATASVIR
     Indication: Chronic hepatitis C
     Dosage: 1 DOSAGE FORM, QD
     Route: 048
     Dates: start: 20220210
  2. XTANDI [Suspect]
     Active Substance: ENZALUTAMIDE
     Indication: Product used for unknown indication
     Route: 065
  3. ALBUTEROL [Concomitant]
     Active Substance: ALBUTEROL
  4. ONDANSETRON HYDROCHLORIDE [Concomitant]
     Active Substance: ONDANSETRON HYDROCHLORIDE
  5. OMEPRAZOLE [Concomitant]
     Active Substance: OMEPRAZOLE
  6. NITROGLYCERIN [Concomitant]
     Active Substance: NITROGLYCERIN
  7. NICOTINE [Concomitant]
     Active Substance: NICOTINE
  8. METOPROLOL SUCCINATE [Concomitant]
     Active Substance: METOPROLOL SUCCINATE
  9. MELOXICAM [Concomitant]
     Active Substance: MELOXICAM
  10. LISINOPRIL [Concomitant]
     Active Substance: LISINOPRIL
  11. LACTULOSE [Concomitant]
     Active Substance: LACTULOSE
  12. IBUPROFEN [Concomitant]
     Active Substance: IBUPROFEN
  13. ACETAMINOPHEN\HYDROCODONE [Concomitant]
     Active Substance: ACETAMINOPHEN\HYDROCODONE
  14. HYDROCHLOROTHIAZIDE [Concomitant]
     Active Substance: HYDROCHLOROTHIAZIDE
  15. FERROUS FUMARATE 324 [Concomitant]
  16. DOK [Concomitant]
     Active Substance: DOCUSATE SODIUM
  17. BETAMETHASONE CLOTRIMAZOLE [Concomitant]
     Active Substance: BETAMETHASONE DIPROPIONATE\CLOTRIMAZOLE
  18. CLONIDINE HYDROCHLORIDE [Concomitant]
     Active Substance: CLONIDINE HYDROCHLORIDE
  19. CEPHALEXIN [Concomitant]
     Active Substance: CEPHALEXIN
  20. ASPIRIN [Concomitant]
     Active Substance: ASPIRIN
  21. POLYETHYLENE GLYCOL 3350 [Concomitant]
     Active Substance: POLYETHYLENE GLYCOL 3350
  22. VITAMIN D3 [Concomitant]
     Active Substance: CHOLECALCIFEROL

REACTIONS (3)
  - Pain in extremity [Unknown]
  - Headache [Unknown]
  - Drug interaction [Unknown]
